FAERS Safety Report 6233455-0 (Version None)
Quarter: 2009Q2

REPORT INFORMATION
  Report Type: 
  Country: None (occurrence: None)
  Receive Date: 20090616
  Receipt Date: 20090616
  Transmission Date: 20091009
  Serious: Yes (Life-Threatening, Hospitalization)
  Sender: FDA-Public Use
  Company Number: None

PATIENT
  Age: 43 Year
  Sex: Female

DRUGS (2)
  1. ROCURONIUM BROMIDE [Suspect]
     Indication: ANAESTHESIA
     Dosage: IV 1
     Route: 042
  2. ROCURONIUM BROMIDE [Suspect]
     Indication: SURGERY
     Dosage: IV 1
     Route: 042

REACTIONS (1)
  - POST PROCEDURAL COMPLICATION [None]
